FAERS Safety Report 10301327 (Version 1)
Quarter: 2014Q3

REPORT INFORMATION
  Report Type: Spontaneous
  Country: US (occurrence: None)
  Receive Date: 20140711
  Receipt Date: 20140711
  Transmission Date: 20150326
  Serious: Yes (Death, Hospitalization)
  Sender: FDA-Public Use
  Company Number: None

PATIENT
  Age: 72 Year
  Sex: Male
  Weight: 73.6 kg

DRUGS (2)
  1. TRETINOIN 10 MG TABS; 22.5 MG/M2/D; D 1-7 + 15-21 [Suspect]
     Active Substance: TRETINOIN
     Indication: ACUTE MYELOID LEUKAEMIA RECURRENT
     Dosage: 6/9-15 + 6/23-29/14 20 MG 2X/D PO
     Route: 048
  2. LITHIUM 300 MG CAPSULES 300 MG 2/X D [Suspect]
     Active Substance: LITHIUM CARBONATE
     Indication: ACUTE MYELOID LEUKAEMIA RECURRENT
     Dates: start: 201205, end: 20140629

REACTIONS (6)
  - Acute myeloid leukaemia [None]
  - Pericarditis infective [None]
  - Pneumonia [None]
  - Pleural effusion [None]
  - Pericardial effusion [None]
  - Marrow hyperplasia [None]

NARRATIVE: CASE EVENT DATE: 20140629
